FAERS Safety Report 19289479 (Version 1)
Quarter: 2021Q2

REPORT INFORMATION
  Report Type: Spontaneous
  Country: FR (occurrence: FR)
  Receive Date: 20210521
  Receipt Date: 20210521
  Transmission Date: 20210717
  Serious: Yes (Other)
  Sender: FDA-Public Use
  Company Number: FR-TEVA-2021-FR-1912626

PATIENT
  Age: 5 Decade
  Sex: Female

DRUGS (2)
  1. LAMOTRIGINE TEVA [Suspect]
     Active Substance: LAMOTRIGINE
     Dosage: 200 MILLIGRAM DAILY;
     Dates: start: 201912
  2. LAMOTRIGINE TEVA [Suspect]
     Active Substance: LAMOTRIGINE
     Dates: start: 201907

REACTIONS (2)
  - Angle closure glaucoma [Unknown]
  - Photophobia [Unknown]
